FAERS Safety Report 7484274-9 (Version None)
Quarter: 2011Q2

REPORT INFORMATION
  Report Type: 
  Country: None (occurrence: None)
  Receive Date: 20110517
  Receipt Date: 20101119
  Transmission Date: 20111010
  Serious: Yes (Other)
  Sender: FDA-Public Use
  Company Number: US-BAYER-201041989NA

PATIENT
  Age: 38 Year
  Sex: Female

DRUGS (1)
  1. AVELOX [Suspect]
     Indication: SINUSITIS
     Dates: start: 20101001, end: 20101001

REACTIONS (5)
  - CHEST PAIN [None]
  - HALLUCINATION [None]
  - HEART RATE INCREASED [None]
  - HOT FLUSH [None]
  - DIZZINESS [None]
